FAERS Safety Report 16786233 (Version 1)
Quarter: 2019Q3

REPORT INFORMATION
  Report Type: Spontaneous
  Country: DE (occurrence: DE)
  Receive Date: 20190909
  Receipt Date: 20190909
  Transmission Date: 20191005
  Serious: Yes (Hospitalization)
  Sender: FDA-Public Use
  Company Number: DE-PFIZER INC-2019383493

PATIENT

DRUGS (15)
  1. CANDESARTAN CILEXETIL. [Suspect]
     Active Substance: CANDESARTAN CILEXETIL
     Dosage: UNK UNK, 1X/DAY
     Route: 048
  2. ACETYLSALICYLIC ACID [Suspect]
     Active Substance: ASPIRIN
     Dosage: UNK UNK, 1X/DAY
     Route: 048
  3. FOSTER [PIROXICAM] [Concomitant]
     Dosage: 2 DF, 1X/DAY
  4. BERODUAL [Suspect]
     Active Substance: FENOTEROL HYDROBROMIDE\IPRATROPIUM BROMIDE
     Dosage: UNK UNK, AS NEEDED
  5. AMLODIPINE BESILATE [Suspect]
     Active Substance: AMLODIPINE BESYLATE
     Dosage: UNK UNK, 2X/DAY
     Route: 048
     Dates: start: 20190720
  6. SIMVASTATIN. [Suspect]
     Active Substance: SIMVASTATIN
     Indication: DYSLIPIDAEMIA
     Dosage: UNK UNK, 1X/DAY
     Route: 048
  7. MORPHINE [Concomitant]
     Active Substance: MORPHINE
     Dosage: 2 DF, 1X/DAY (UNK, TWO TIMES A DAY)
  8. METAMIZOL [Suspect]
     Active Substance: METAMIZOLE SODIUM
     Dosage: UNK, 1/2-0-1/2-0
     Route: 048
  9. ALENDRONATE [Suspect]
     Active Substance: ALENDRONATE SODIUM
     Dosage: UNK
     Route: 048
     Dates: start: 2017
  10. ROFLUMILAST. [Suspect]
     Active Substance: ROFLUMILAST
     Dosage: UNK UNK, 1X/DAY
     Route: 048
  11. SPIRIVA RESPIMAT [Suspect]
     Active Substance: TIOTROPIUM BROMIDE
     Dosage: UNK UNK, 2X/DAY
  12. ACE [HYOSCINE METHOBROMIDE] [Suspect]
     Active Substance: METHSCOPOLAMINE BROMIDE
     Dosage: UNK UNK, 1X/DAY
     Route: 048
     Dates: start: 20190720
  13. MOVICOL [Concomitant]
     Active Substance: POLYETHYLENE GLYCOL 3350\POTASSIUM CHLORIDE\SODIUM BICARBONATE\SODIUM CHLORIDE
     Dosage: UNK
  14. SPIRIVA [Concomitant]
     Active Substance: TIOTROPIUM BROMIDE MONOHYDRATE
     Dosage: 36 UG, 1X/DAY
  15. COLECALCIFEROL [Suspect]
     Active Substance: CHOLECALCIFEROL
     Dosage: UNK UNK, 1X/DAY
     Route: 048

REACTIONS (4)
  - Dizziness [Unknown]
  - Off label use [Unknown]
  - Cerebrovascular accident [Recovered/Resolved]
  - Nausea [Unknown]

NARRATIVE: CASE EVENT DATE: 20190720
